FAERS Safety Report 25962117 (Version 1)
Quarter: 2025Q4

REPORT INFORMATION
  Report Type: Spontaneous
  Country: EU (occurrence: None)
  Receive Date: 20251027
  Receipt Date: 20251027
  Transmission Date: 20260118
  Serious: Yes (Other)
  Sender: ENDO
  Company Number: EU-ENDO USA, INC.-2025-001905

PATIENT
  Sex: Female

DRUGS (1)
  1. AVEED [Suspect]
     Active Substance: TESTOSTERONE UNDECANOATE
     Indication: Virilism
     Dosage: 1000 MILLIGRAM, EVERY 3 MONTHS
     Route: 065

REACTIONS (4)
  - Seborrhoea [Not Recovered/Not Resolved]
  - Scar [Not Recovered/Not Resolved]
  - Acne [Not Recovered/Not Resolved]
  - Off label use [Unknown]
